FAERS Safety Report 4428662-3 (Version None)
Quarter: 2004Q3

REPORT INFORMATION
  Report Type: 
  Country: None (occurrence: None)
  Receive Date: 20040818
  Receipt Date: 20030922
  Transmission Date: 20050211
  Serious: No
  Sender: FDA-Public Use
  Company Number: US-BRISTOL-MYERS SQUIBB COMPANY-12391140

PATIENT
  Age: 77 Year
  Sex: Female
  Weight: 67 kg

DRUGS (9)
  1. TEQUIN [Suspect]
     Indication: CYSTITIS
     Dosage: EXP. DATE 09-01-04
     Route: 048
     Dates: start: 20030902, end: 20030904
  2. DILANTIN [Concomitant]
     Dosage: TAKEN FOR 15-20 YEARS
  3. PHENOBARBITAL TAB [Concomitant]
     Dosage: TAKEN FOR 15-20 YEARS.
  4. NEXIUM [Concomitant]
  5. ASPIRIN [Concomitant]
  6. MULTIVITAMIN [Concomitant]
     Dosage: TAKEN FOR 5-6 YEARS.
  7. CALCIUM [Concomitant]
     Dosage: TAKEN FOR 6-10 YEARS, ONCE AT NIGHT.
  8. MAGNESIUM [Concomitant]
  9. FOSAMAX [Concomitant]
     Dosage: TAKEN FOR 5-7 YEARS.

REACTIONS (3)
  - HEADACHE [None]
  - NECK PAIN [None]
  - PAIN [None]
